FAERS Safety Report 18446505 (Version 1)
Quarter: 2020Q4

REPORT INFORMATION
  Report Type: Spontaneous
  Country: US (occurrence: US)
  Receive Date: 20201030
  Receipt Date: 20201030
  Transmission Date: 20210114
  Serious: No
  Sender: FDA-Public Use
  Company Number: None

PATIENT
  Age: 45 Year
  Sex: Female

DRUGS (1)
  1. SOFOSBUVIR/VELSPATASVIR 400/100MG [Suspect]
     Active Substance: SOFOSBUVIR\VELPATASVIR
     Indication: CHRONIC HEPATITIS C
     Dosage: ?          OTHER DOSE:400MG/100MG;?
     Route: 058
     Dates: start: 20200914

REACTIONS (2)
  - Extra dose administered [None]
  - Nausea [None]

NARRATIVE: CASE EVENT DATE: 20201020
